FAERS Safety Report 4441591-4 (Version None)
Quarter: 2004Q3

REPORT INFORMATION
  Report Type: 
  Country: None (occurrence: None)
  Receive Date: 20040907
  Receipt Date: 20040818
  Transmission Date: 20050211
  Serious: Yes (Hospitalization)
  Sender: FDA-Public Use
  Company Number: 200418209GDDC

PATIENT
  Age: 62 Year
  Sex: Female
  Weight: 73 kg

DRUGS (7)
  1. DOCETAXEL [Suspect]
     Indication: BREAST CANCER METASTATIC
     Route: 042
     Dates: start: 20040810, end: 20040810
  2. DOXORUBICIN HCL [Suspect]
     Indication: BREAST CANCER METASTATIC
     Route: 042
     Dates: start: 20040810, end: 20040810
  3. NOOTROPIL [Concomitant]
     Indication: HYPERTENSION
     Route: 048
     Dates: start: 20010101
  4. CHINOTAL [Concomitant]
     Route: 048
     Dates: start: 20010101
  5. RENITEC [Concomitant]
     Indication: HYPERTENSION
     Route: 048
     Dates: start: 20010101
  6. GRANOCYTE [Concomitant]
     Route: 058
     Dates: start: 20040812
  7. UNKNOWN DRUG [Concomitant]

REACTIONS (5)
  - HAEMATURIA [None]
  - LEUKOPENIA [None]
  - MELAENA [None]
  - NEUTROPENIA [None]
  - PROTHROMBIN LEVEL DECREASED [None]
